FAERS Safety Report 6668775-9 (Version None)
Quarter: 2010Q1

REPORT INFORMATION
  Report Type: 
  Country: None (occurrence: None)
  Receive Date: 20100322
  Receipt Date: 20100318
  Transmission Date: 20100710
  Serious: Yes (Life-Threatening)
  Sender: FDA-Public Use
  Company Number: 2010022238

PATIENT
  Age: 65 Year
  Sex: Male

DRUGS (4)
  1. IMMUNE GLOBULIN INTRAVENOUS (HUMAN) [Suspect]
     Indication: CHRONIC INFLAMMATORY DEMYELINATING POLYRADICULONEUROPATHY
     Dosage: 0.4 G/KG FOR 5 DAYS INTRAVENOUS
     Route: 042
  2. CANDESARTAN CILEXETIL [Concomitant]
  3. ROSEMIDE (FUROSEMIDE) [Concomitant]
  4. CLONIDINE [Concomitant]

REACTIONS (9)
  - ACUTE MYOCARDIAL INFARCTION [None]
  - ACUTE PULMONARY OEDEMA [None]
  - CARDIAC FAILURE [None]
  - HYPERTENSION [None]
  - HYPOXIA [None]
  - RENAL FAILURE [None]
  - RENAL ISCHAEMIA [None]
  - RENAL TUBULAR NECROSIS [None]
  - RESPIRATORY TRACT INFECTION [None]
